FAERS Safety Report 25070208 (Version 1)
Quarter: 2025Q1

REPORT INFORMATION
  Report Type: Spontaneous
  Country: US (occurrence: US)
  Receive Date: 20250312
  Receipt Date: 20250312
  Transmission Date: 20250409
  Serious: Yes (Life-Threatening)
  Sender: BAXTER
  Company Number: US-BAXTER-2025BAX012317

PATIENT
  Age: 56 Year
  Sex: Female

DRUGS (1)
  1. MILRINONE [Suspect]
     Active Substance: MILRINONE
     Route: 065

REACTIONS (4)
  - General physical health deterioration [Unknown]
  - Device infusion issue [Unknown]
  - Drug dose omission by device [Unknown]
  - Device alarm issue [Unknown]
